FAERS Safety Report 8102364-4 (Version None)
Quarter: 2012Q1

REPORT INFORMATION
  Report Type: 
  Country: None (occurrence: None)
  Receive Date: 20120201
  Receipt Date: 20120127
  Transmission Date: 20120608
  Serious: No
  Sender: FDA-Public Use
  Company Number: US-PFIZER INC-2012023367

PATIENT
  Sex: Female
  Weight: 56.6 kg

DRUGS (3)
  1. ZANTAC [Concomitant]
     Indication: DYSPEPSIA
     Dosage: UNK, AS NEEDED
     Route: 048
  2. IBUPROFEN (ADVIL) [Suspect]
     Indication: PAIN IN EXTREMITY
     Dosage: 200 MG, 1X/DAY
     Dates: start: 20120124
  3. IBUPROFEN (ADVIL) [Suspect]
     Indication: ARTHRALGIA
     Dosage: 200 MG, 3X/DAY
     Dates: start: 20120125, end: 20120126

REACTIONS (1)
  - DYSPEPSIA [None]
